FAERS Safety Report 7694004-3 (Version None)
Quarter: 2011Q3

REPORT INFORMATION
  Report Type: 
  Country: None (occurrence: None)
  Receive Date: 20110819
  Receipt Date: 20110816
  Transmission Date: 20111222
  Serious: Yes (Hospitalization, Other)
  Sender: FDA-Public Use
  Company Number: US-SANOFI-AVENTIS-2011SA052521

PATIENT
  Sex: Female

DRUGS (8)
  1. MULTAQ [Suspect]
     Indication: ATRIAL FLUTTER
     Route: 048
     Dates: start: 20110401, end: 20110810
  2. COUMADIN [Suspect]
     Route: 065
     Dates: end: 20110810
  3. METOPROLOL [Concomitant]
     Dates: end: 20110810
  4. CARDIZEM [Concomitant]
     Dates: end: 20110810
  5. LEVOTHYROXINE SODIUM [Concomitant]
     Dates: end: 20110810
  6. LIPITOR [Concomitant]
     Dates: end: 20110810
  7. LASIX [Concomitant]
     Dates: end: 20110810
  8. DIGOXIN [Concomitant]
     Dates: end: 20110810

REACTIONS (9)
  - RENAL FAILURE ACUTE [None]
  - LIVER FUNCTION TEST ABNORMAL [None]
  - BLOOD BILIRUBIN INCREASED [None]
  - LETHARGY [None]
  - AMMONIA INCREASED [None]
  - INTERNATIONAL NORMALISED RATIO INCREASED [None]
  - BLOOD CREATININE INCREASED [None]
  - BLOOD CREATINE PHOSPHOKINASE INCREASED [None]
  - HEPATIC FAILURE [None]
